FAERS Safety Report 7966936-X (Version None)
Quarter: 2011Q4

REPORT INFORMATION
  Report Type: 
  Country: None (occurrence: None)
  Receive Date: 20111209
  Receipt Date: 20111207
  Transmission Date: 20120403
  Serious: Yes (Death, Hospitalization)
  Sender: FDA-Public Use
  Company Number: JP-PFIZER INC-2011281070

PATIENT
  Age: 95 Year
  Sex: Female

DRUGS (3)
  1. CELECOXIB [Suspect]
     Dosage: UNK
     Route: 048
  2. WARFARIN SODIUM [Suspect]
     Dosage: UNK
  3. ASPIRIN [Concomitant]

REACTIONS (2)
  - GASTROINTESTINAL HAEMORRHAGE [None]
  - SHOCK HAEMORRHAGIC [None]
